FAERS Safety Report 18078839 (Version 1)
Quarter: 2020Q3

REPORT INFORMATION
  Report Type: Spontaneous
  Country: US (occurrence: US)
  Receive Date: 20200727
  Receipt Date: 20200727
  Transmission Date: 20201103
  Serious: No
  Sender: FDA-Public Use
  Company Number: None

PATIENT
  Age: 81 Year
  Sex: Female
  Weight: 122 kg

DRUGS (20)
  1. CARVEDILOL. [Concomitant]
     Active Substance: CARVEDILOL
  2. LEVOTHYROXINE SODIUM. [Concomitant]
     Active Substance: LEVOTHYROXINE SODIUM
  3. SOTALOL. [Concomitant]
     Active Substance: SOTALOL
  4. IBRANCE [Suspect]
     Active Substance: PALBOCICLIB
     Indication: BREAST CANCER
     Route: 048
     Dates: start: 20200528, end: 20200727
  5. ZOFRAN [Concomitant]
     Active Substance: ONDANSETRON HYDROCHLORIDE
  6. ELIQUIS [Concomitant]
     Active Substance: APIXABAN
  7. NORCO [Concomitant]
     Active Substance: ACETAMINOPHEN\HYDROCODONE BITARTRATE
  8. PREDNISONE. [Concomitant]
     Active Substance: PREDNISONE
  9. VITAMIN D [Concomitant]
     Active Substance: VITAMIN D NOS
  10. ENALAPRIL MALEATE. [Concomitant]
     Active Substance: ENALAPRIL MALEATE
  11. FAMOTIDINE. [Concomitant]
     Active Substance: FAMOTIDINE
  12. MAGNESIUM OXIDE. [Concomitant]
     Active Substance: MAGNESIUM OXIDE
  13. METOLAZONE. [Concomitant]
     Active Substance: METOLAZONE
  14. POTASSIUM CHLORIDE. [Concomitant]
     Active Substance: POTASSIUM CHLORIDE
  15. NITROGLYCERIN. [Concomitant]
     Active Substance: NITROGLYCERIN
  16. VITAMIN B12 [Concomitant]
     Active Substance: CYANOCOBALAMIN
  17. XGEVA [Concomitant]
     Active Substance: DENOSUMAB
  18. ARIMIDEX [Concomitant]
     Active Substance: ANASTROZOLE
  19. FLONASE [Concomitant]
     Active Substance: FLUTICASONE PROPIONATE
  20. ISOSORBIDE MONONITRATE. [Concomitant]
     Active Substance: ISOSORBIDE MONONITRATE

REACTIONS (1)
  - Neutropenia [None]
